FAERS Safety Report 6011630-8 (Version None)
Quarter: 2008Q4

REPORT INFORMATION
  Report Type: 
  Country: None (occurrence: None)
  Receive Date: 20081217
  Receipt Date: 20081217
  Transmission Date: 20090506
  Serious: Yes (Other)
  Sender: FDA-Public Use
  Company Number: None

PATIENT
  Age: 84 Year
  Sex: Male
  Weight: 67.586 kg

DRUGS (2)
  1. PROMETHAZINE [Suspect]
     Indication: NAUSEA
     Dosage: 25MG/1ML  Q4H PRN IV
     Route: 042
     Dates: start: 20081214, end: 20081214
  2. PROMETHAZINE [Suspect]
     Indication: VOMITING
     Dosage: 25MG/1ML  Q4H PRN IV
     Route: 042
     Dates: start: 20081214, end: 20081214

REACTIONS (2)
  - CONFUSIONAL STATE [None]
  - DRUG HYPERSENSITIVITY [None]
